FAERS Safety Report 4408489-9 (Version None)
Quarter: 2004Q3

REPORT INFORMATION
  Report Type: 
  Country: None (occurrence: None)
  Receive Date: 20040723
  Receipt Date: 20040709
  Transmission Date: 20050211
  Serious: Yes (Hospitalization)
  Sender: FDA-Public Use
  Company Number: 2003-DE-00398GL

PATIENT
  Age: 77 Year
  Sex: Male

DRUGS (2)
  1. TELMISARTAN (TA) [Suspect]
     Indication: HYPERTENSION
     Dosage: 28 TABLETS (80MG); PO
     Route: 048
  2. OXAZEPAM (OXAZEPAM) (TA) (OXAZEPAM) [Suspect]
     Dosage: 20 TABLETS (30 MG); PO
     Route: 048

REACTIONS (5)
  - DEPRESSED MOOD [None]
  - HYPOTENSION [None]
  - MULTIPLE DRUG OVERDOSE INTENTIONAL [None]
  - PANCREATITIS ACUTE [None]
  - SUICIDE ATTEMPT [None]
